FAERS Safety Report 8139518-7 (Version None)
Quarter: 2012Q1

REPORT INFORMATION
  Report Type: 
  Country: None (occurrence: None)
  Receive Date: 20120215
  Receipt Date: 20120209
  Transmission Date: 20120608
  Serious: Yes (Life-Threatening, Hospitalization, Other)
  Sender: FDA-Public Use
  Company Number: JP-ABBOTT-10P-087-0665021-00

PATIENT
  Sex: Female
  Weight: 46 kg

DRUGS (9)
  1. METHOTREXATE [Concomitant]
     Indication: RHEUMATOID ARTHRITIS
     Dosage: 7.5MG/WEEK
     Route: 048
     Dates: start: 19880101, end: 20100701
  2. FOLIC ACID [Concomitant]
     Indication: ADVERSE DRUG REACTION
     Route: 048
     Dates: start: 19930201, end: 20100802
  3. SODIUM HYALURONATE [Concomitant]
     Indication: DRY EYE
     Dosage: SEVERAL TIMES
     Route: 047
  4. NAPROXEN [Concomitant]
     Indication: RHEUMATOID ARTHRITIS
     Route: 048
     Dates: start: 19871001
  5. BROTIZOLAM [Concomitant]
     Indication: INITIAL INSOMNIA
     Route: 048
  6. METHOTREXATE [Concomitant]
     Dosage: 5.0 MG /WEEK
     Dates: start: 20100701, end: 20100802
  7. FOLIC ACID [Concomitant]
     Indication: DRUG THERAPY
  8. FOLIC ACID [Concomitant]
     Indication: PROPHYLAXIS
  9. HUMIRA [Suspect]
     Indication: RHEUMATOID ARTHRITIS
     Route: 050
     Dates: start: 20100316, end: 20100721

REACTIONS (5)
  - IMMUNE RECONSTITUTION SYNDROME [None]
  - DISSEMINATED TUBERCULOSIS [None]
  - MENINGITIS TUBERCULOUS [None]
  - TUBERCULOSIS OF CENTRAL NERVOUS SYSTEM [None]
  - LYMPH NODE TUBERCULOSIS [None]
